FAERS Safety Report 7166693-3 (Version None)
Quarter: 2010Q4

REPORT INFORMATION
  Report Type: 
  Country: None (occurrence: None)
  Receive Date: 20101216
  Receipt Date: 20101209
  Transmission Date: 20110411
  Serious: Yes (Death, Hospitalization)
  Sender: FDA-Public Use
  Company Number: SE-ROCHE-727349

PATIENT

DRUGS (2)
  1. CAPECITABINE [Suspect]
     Indication: OESOPHAGEAL CANCER METASTATIC
     Dosage: DOSE AND FREQUENCY TAKEN ACCORDING TO PROTOCOL, DATE OF LAST DOSE PRIOR TO SAE: 10 SEPTEMBER 2010
     Route: 048
     Dates: start: 20100901
  2. DOCETAXEL [Suspect]
     Indication: GASTROINTESTINAL CARCINOMA
     Dosage: DOSE ACCORDING TO PROTOCOL, DATE OF LAST DOSE PRIOR TO SAE: 10 SEPTEMBER 2010
     Route: 042
     Dates: start: 20100901

REACTIONS (2)
  - CARDIAC FAILURE [None]
  - FEBRILE NEUTROPENIA [None]
